FAERS Safety Report 23745236 (Version 1)
Quarter: 2024Q2

REPORT INFORMATION
  Report Type: Report from Study
  Country: US (occurrence: US)
  Receive Date: 20240416
  Receipt Date: 20240416
  Transmission Date: 20240716
  Serious: Yes (Hospitalization)
  Sender: FDA-Public Use
  Company Number: US-ABBVIE-5713076

PATIENT
  Sex: Male

DRUGS (1)
  1. VENCLEXTA [Suspect]
     Active Substance: VENETOCLAX
     Indication: Acute myeloid leukaemia
     Dosage: 1X50 MG TABLET AND 2X10 MG TABLETS
     Route: 048
     Dates: start: 20240125

REACTIONS (1)
  - Investigation abnormal [Unknown]

NARRATIVE: CASE EVENT DATE: 20240101
